FAERS Safety Report 9828708 (Version 2)
Quarter: 2014Q1

REPORT INFORMATION
  Report Type: Spontaneous
  Country: US (occurrence: US)
  Receive Date: 20140117
  Receipt Date: 20140206
  Transmission Date: 20141002
  Serious: Yes (Death, Other)
  Sender: FDA-Public Use
  Company Number: US-GILEAD-2014-0092349

PATIENT
  Sex: Male

DRUGS (3)
  1. RANEXA [Suspect]
     Indication: ANGINA PECTORIS
     Dosage: 500 MG, UNK
     Route: 048
     Dates: start: 2008, end: 2013
  2. RANEXA [Suspect]
     Indication: CORONARY ARTERY DISEASE
  3. RANEXA [Suspect]
     Indication: CHEST PAIN

REACTIONS (1)
  - Gun shot wound [Fatal]
